FAERS Safety Report 10749404 (Version 2)
Quarter: 2015Q1

REPORT INFORMATION
  Report Type: Spontaneous
  Country: DK (occurrence: GB)
  Receive Date: 20150129
  Receipt Date: 20150205
  Transmission Date: 20150721
  Serious: Yes (Death, Other)
  Sender: FDA-Public Use
  Company Number: GB-FRI-1000073936

PATIENT
  Age: 51 Year
  Sex: Female

DRUGS (4)
  1. ESCITALOPRAM [Interacting]
     Active Substance: ESCITALOPRAM OXALATE
     Dosage: 15 MG DAILY
     Route: 048
  2. LETROZOLE. [Interacting]
     Active Substance: LETROZOLE
     Indication: BREAST CANCER STAGE II
     Dosage: 2.5 MG DAILY
     Route: 048
     Dates: start: 20140617
  3. ESCITALOPRAM [Suspect]
     Active Substance: ESCITALOPRAM OXALATE
     Indication: DEPRESSED MOOD
     Dosage: 10 MG DAILY
     Route: 048
     Dates: start: 20140620
  4. ADCAL-D3 [Concomitant]
     Active Substance: CALCIUM CARBONATE\CHOLECALCIFEROL
     Indication: ILL-DEFINED DISORDER
     Route: 065

REACTIONS (3)
  - Depression [Not Recovered/Not Resolved]
  - Completed suicide [Fatal]
  - Drug interaction [Not Recovered/Not Resolved]

NARRATIVE: CASE EVENT DATE: 20140721
